FAERS Safety Report 8106168-8 (Version None)
Quarter: 2012Q1

REPORT INFORMATION
  Report Type: 
  Country: None (occurrence: None)
  Receive Date: 20120130
  Receipt Date: 20120116
  Transmission Date: 20120608
  Serious: Yes (Death)
  Sender: FDA-Public Use
  Company Number: 2012POI058000015

PATIENT
  Age: 34 Year
  Sex: Female

DRUGS (6)
  1. OXYCODONE HYDROCHLORIDE [Suspect]
     Dates: end: 20100101
  2. ALPRAZOLAM [Suspect]
     Dates: end: 20100101
  3. LIDOCAINE [Suspect]
     Dates: end: 20100101
  4. CARISOPRODOL [Suspect]
     Dates: end: 20100101
  5. FENTANYL-100 [Suspect]
     Dates: end: 20100101
  6. BUPRENORPHINE/NALOXONE (SUBLINGUAL) [Suspect]
     Dates: end: 20100101

REACTIONS (2)
  - CARDIAC ARREST [None]
  - RESPIRATORY ARREST [None]
